FAERS Safety Report 4621645-X (Version None)
Quarter: 2005Q1

REPORT INFORMATION
  Report Type: 
  Country: None (occurrence: None)
  Receive Date: 20050328
  Receipt Date: 20050315
  Transmission Date: 20050727
  Serious: Yes (Disabling)
  Sender: FDA-Public Use
  Company Number: A006134

PATIENT
  Age: 52 Year
  Sex: Male

DRUGS (2)
  1. VIAGRA [Suspect]
     Indication: ERECTILE DYSFUNCTION
     Dosage: 50 MG (1 D), ORAL
     Route: 048
  2. METHYLPHENIDATE HCL [Concomitant]

REACTIONS (4)
  - HEADACHE [None]
  - HYPERHIDROSIS [None]
  - HYPOTENSION [None]
  - OPTIC ISCHAEMIC NEUROPATHY [None]
